FAERS Safety Report 5797520-4 (Version None)
Quarter: 2008Q3

REPORT INFORMATION
  Report Type: 
  Country: None (occurrence: None)
  Receive Date: 20080702
  Receipt Date: 20080627
  Transmission Date: 20090109
  Serious: Yes (Death, Other)
  Sender: FDA-Public Use
  Company Number: GB-RANBAXY-2008RR-16115

PATIENT

DRUGS (4)
  1. LISINOPRIL [Suspect]
     Indication: HYPERTENSION
     Dosage: 2.5 UNK, UNK
     Route: 048
     Dates: start: 20080520, end: 20080613
  2. FERROPUS SULPHATE [Concomitant]
     Indication: ANAEMIA
     Dosage: 200 MG, TID
     Route: 048
     Dates: start: 20070101
  3. METOCLOPRAMIDE [Concomitant]
     Indication: GASTROINTESTINAL DISORDER
     Dosage: 10 MG, TID
     Route: 048
     Dates: start: 20071213
  4. OMEPRAZOLE [Concomitant]
     Indication: GASTROINTESTINAL DISORDER
     Dosage: 20 MG, QD
     Route: 048
     Dates: start: 20070929

REACTIONS (3)
  - OEDEMA MOUTH [None]
  - OROPHARYNGEAL PAIN [None]
  - STOMATITIS [None]
